FAERS Safety Report 9846425 (Version 1)
Quarter: 2014Q1

REPORT INFORMATION
  Report Type: Spontaneous
  Country: GB (occurrence: GB)
  Receive Date: 20140127
  Receipt Date: 20140127
  Transmission Date: 20141002
  Serious: Yes (Other)
  Sender: FDA-Public Use
  Company Number: GB-PFIZER INC-2014020957

PATIENT
  Age: 83 Year
  Sex: Male

DRUGS (9)
  1. SERTRALINE HCL [Suspect]
     Indication: IMPULSE-CONTROL DISORDER
     Dosage: 50 MG, UNK
     Route: 048
     Dates: start: 20131206, end: 20131220
  2. CLONAZEPAM [Concomitant]
     Indication: SLEEP DISORDER
     Dosage: 0.5 MG, UNK
     Route: 048
     Dates: start: 201309
  3. CO-AMILOFRUSE [Concomitant]
     Dosage: 5MG/40MG
     Route: 048
  4. LANSOPRAZOLE [Concomitant]
     Dosage: UNK
     Dates: start: 20131206
  5. LEVOTHYROXINE [Concomitant]
     Dosage: 125 UG, 1X/DAY
  6. GABAPENTIN [Concomitant]
     Dosage: 100 MG, 2X/DAY
  7. SIMVASTATIN [Concomitant]
     Dosage: 20 MG, 1X/DAY
  8. MOVICOL [Concomitant]
     Dosage: UNK
  9. CO-CODAMOL [Concomitant]
     Dosage: 8/500MG

REACTIONS (4)
  - Swollen tongue [Recovered/Resolved]
  - Oedema mouth [Recovered/Resolved]
  - Abnormal dreams [Recovered/Resolved]
  - Condition aggravated [Unknown]
